FAERS Safety Report 26099776 (Version 2)
Quarter: 2025Q4

REPORT INFORMATION
  Report Type: Report from Study
  Country: US (occurrence: US)
  Receive Date: 20251128
  Receipt Date: 20251216
  Transmission Date: 20260118
  Serious: Yes (Hospitalization, Other)
  Sender: UCB
  Company Number: US-UCBSA-2024061402

PATIENT
  Weight: 23.3 kg

DRUGS (8)
  1. FENFLURAMINE [Suspect]
     Active Substance: FENFLURAMINE
     Indication: Severe myoclonic epilepsy of infancy
     Dosage: 0.47 MG/KG/DAY
  2. FENFLURAMINE [Suspect]
     Active Substance: FENFLURAMINE
     Dosage: 2.5 MILLILITER, 2X/DAY (BID)
  3. FENFLURAMINE [Suspect]
     Active Substance: FENFLURAMINE
     Dosage: 2.5 MILLILITER, 2X/DAY (BID)
  4. FENFLURAMINE [Suspect]
     Active Substance: FENFLURAMINE
     Dosage: 2.5 MILLILITER, 2X/DAY (BID)
  5. FENFLURAMINE [Suspect]
     Active Substance: FENFLURAMINE
     Dosage: 13.2 MILLIGRAM PER DAY
  6. FENFLURAMINE [Suspect]
     Active Substance: FENFLURAMINE
     Dosage: 3 MILLILITER, 2X/DAY (BID)
  7. FENFLURAMINE [Suspect]
     Active Substance: FENFLURAMINE
     Dosage: 3 MILLILITER, 2X/DAY (BID)
     Route: 061
  8. EPIDIOLEX [Concomitant]
     Active Substance: CANNABIDIOL
     Indication: Product used for unknown indication
     Dosage: UNK

REACTIONS (10)
  - Seizure [Not Recovered/Not Resolved]
  - Balance disorder [Not Recovered/Not Resolved]
  - Weight decreased [Unknown]
  - Weight gain poor [Not Recovered/Not Resolved]
  - Psychomotor hyperactivity [Not Recovered/Not Resolved]
  - Somnolence [Not Recovered/Not Resolved]
  - Diplopia [Not Recovered/Not Resolved]
  - Wrong technique in product usage process [Unknown]
  - Product availability issue [Unknown]
  - Therapy interrupted [Unknown]
